FAERS Safety Report 16003956 (Version 2)
Quarter: 2025Q1

REPORT INFORMATION
  Report Type: Spontaneous
  Country: FI (occurrence: FI)
  Receive Date: 20190226
  Receipt Date: 20250131
  Transmission Date: 20250408
  Serious: Yes (Other)
  Sender: BAUSCH AND LOMB
  Company Number: None

PATIENT
  Age: 38 Year
  Sex: Male

DRUGS (4)
  1. VENLAFAXINE [Suspect]
     Active Substance: VENLAFAXINE HYDROCHLORIDE
     Indication: Product used for unknown indication
     Route: 048
  2. ABILIFY [Suspect]
     Active Substance: ARIPIPRAZOLE
     Indication: Product used for unknown indication
     Route: 048
  3. ABILIFY [Suspect]
     Active Substance: ARIPIPRAZOLE
     Indication: Schizophrenia
  4. CLOZAPINE [Suspect]
     Active Substance: CLOZAPINE
     Indication: Schizophrenia
     Route: 048

REACTIONS (20)
  - Gambling disorder [Recovering/Resolving]
  - Ankle fracture [Unknown]
  - Alcoholism [Recovered/Resolved]
  - Nicotine dependence [Recovered/Resolved]
  - Emotional poverty [Recovering/Resolving]
  - Disorientation [Recovering/Resolving]
  - Fatigue [Unknown]
  - Condition aggravated [Unknown]
  - Quality of life decreased [Unknown]
  - Economic problem [Unknown]
  - Impulsive behaviour [Unknown]
  - Malaise [Unknown]
  - Heart rate increased [Recovering/Resolving]
  - Memory impairment [Not Recovered/Not Resolved]
  - Confusional state [Unknown]
  - Salivary hypersecretion [Recovering/Resolving]
  - Weight increased [Recovering/Resolving]
  - Coordination abnormal [Recovering/Resolving]
  - Altered state of consciousness [Recovering/Resolving]
  - Therapy cessation [Unknown]
